FAERS Safety Report 23091681 (Version 1)
Quarter: 2023Q4

REPORT INFORMATION
  Report Type: Report from Study
  Country: US (occurrence: US)
  Receive Date: 20231020
  Receipt Date: 20231020
  Transmission Date: 20240109
  Serious: Yes (Hospitalization, Other)
  Sender: FDA-Public Use
  Company Number: US-AMRYT PHARMACEUTICALS DAC-AEGR006627

PATIENT
  Sex: Male
  Weight: 99.773 kg

DRUGS (4)
  1. OCTREOTIDE [Suspect]
     Active Substance: OCTREOTIDE
     Indication: Acromegaly
     Dosage: UNK
     Route: 048
     Dates: start: 20230420, end: 20230829
  2. OCTREOTIDE [Suspect]
     Active Substance: OCTREOTIDE
     Indication: Gigantism
     Dosage: 20 MILLIGRAM, BID (1 HOUR BEFORE OR 2 HOURS AFTER A MEAL)
     Route: 048
  3. VITAMIN D3 [Concomitant]
     Active Substance: CHOLECALCIFEROL
     Indication: Product used for unknown indication
  4. VITAMINS NOS [Concomitant]
     Active Substance: VITAMINS
     Indication: Product used for unknown indication

REACTIONS (10)
  - Gallbladder disorder [Unknown]
  - Hospitalisation [Unknown]
  - Sneezing [Unknown]
  - Bowel movement irregularity [Unknown]
  - Tooth disorder [Unknown]
  - Biliary colic [Unknown]
  - Dizziness [Unknown]
  - Fatigue [Unknown]
  - Product supply issue [Unknown]
  - Treatment noncompliance [Unknown]
